FAERS Safety Report 9147005 (Version 1)
Quarter: 2013Q1

REPORT INFORMATION
  Report Type: Report from Study
  Country: IL (occurrence: IL)
  Receive Date: 20130307
  Receipt Date: 20130307
  Transmission Date: 20140127
  Serious: Yes (Death, Life-Threatening, Hospitalization, Other)
  Sender: FDA-Public Use
  Company Number: IL-ROCHE-1080410

PATIENT
  Age: 53 Year
  Sex: Female
  Weight: 70.5 kg

DRUGS (19)
  1. ADO-TRASTUZUMAB EMTANSINE [Suspect]
     Indication: BREAST CANCER METASTATIC
     Dosage: DATE OF LAST DOSE PRIOR TO EVENTS: 255MG ON 19/JUN/2012
     Route: 042
     Dates: start: 20120529, end: 20120619
  2. CLEXANE [Suspect]
     Indication: PULMONARY EMBOLISM
     Route: 065
     Dates: start: 20120409
  3. RAMIPRIL [Concomitant]
     Indication: HYPERTENSION
     Route: 065
     Dates: start: 2011
  4. IBUPROFEN [Concomitant]
     Indication: TUMOUR ASSOCIATED FEVER
     Route: 065
     Dates: start: 20120501
  5. TARGIN [Concomitant]
     Indication: TUMOUR PAIN
     Route: 065
     Dates: start: 20120429
  6. BONDORMIN [Concomitant]
     Indication: PROPHYLAXIS
     Route: 065
     Dates: start: 2011
  7. BONDORMIN [Concomitant]
     Route: 065
     Dates: start: 20120520, end: 20120629
  8. DUROGESIC [Concomitant]
     Indication: TUMOUR PAIN
     Route: 065
     Dates: start: 20120531
  9. AVILAC [Concomitant]
     Indication: CONSTIPATION
     Route: 065
     Dates: start: 20120627, end: 20120702
  10. FUSID [Concomitant]
     Indication: OEDEMA PERIPHERAL
     Route: 042
     Dates: start: 20120625, end: 20120625
  11. FUSID [Concomitant]
     Indication: OEDEMA
     Route: 065
     Dates: start: 20120703, end: 20120703
  12. MORPHINE [Concomitant]
     Indication: TUMOUR PAIN
     Route: 042
     Dates: start: 20120629, end: 20120705
  13. OPTALGIN [Concomitant]
     Indication: TUMOUR PAIN
     Route: 042
     Dates: start: 20120529, end: 20120619
  14. OPTALGIN [Concomitant]
     Indication: TUMOUR PAIN
     Route: 042
     Dates: start: 20120626, end: 20120705
  15. PRAMIN [Concomitant]
     Indication: NAUSEA
     Route: 065
     Dates: start: 20120521, end: 20120602
  16. TARIVID [Concomitant]
     Indication: PNEUMONIA
     Route: 065
     Dates: start: 20120620, end: 20120624
  17. OXYCODONE [Concomitant]
     Indication: TUMOUR PAIN
     Route: 065
     Dates: start: 20120623, end: 20120629
  18. ROCEPHIN [Concomitant]
     Indication: PNEUMONIA
     Route: 065
     Dates: start: 20120620, end: 20120622
  19. KYTRIL [Concomitant]
     Indication: NAUSEA
     Route: 042
     Dates: start: 20120524, end: 20120528

REACTIONS (5)
  - Subarachnoid haemorrhage [Fatal]
  - Drug-induced liver injury [Not Recovered/Not Resolved]
  - Thrombocytopenia [Not Recovered/Not Resolved]
  - Infusion related reaction [Recovered/Resolved]
  - Aspartate aminotransferase increased [Not Recovered/Not Resolved]
